FAERS Safety Report 8453053-8 (Version None)
Quarter: 2012Q2

REPORT INFORMATION
  Report Type: 
  Country: None (occurrence: None)
  Receive Date: 20120620
  Receipt Date: 20120615
  Transmission Date: 20120825
  Serious: Yes (Hospitalization)
  Sender: FDA-Public Use
  Company Number: PHHY2012DK015800

PATIENT
  Sex: Female

DRUGS (3)
  1. HUMIRA [Suspect]
     Indication: PSORIATIC ARTHROPATHY
     Dosage: 40 MG, BIW
     Dates: start: 20100922, end: 20110705
  2. METHOTREXATE [Suspect]
     Indication: PSORIATIC ARTHROPATHY
     Route: 048
     Dates: start: 20100902, end: 20110317
  3. HUMIRA [Suspect]
     Dosage: STOPDATO/SENESTE I BEHANDLINGSSERIEN: 05JUL2011
     Dates: start: 20100922

REACTIONS (1)
  - RENAL CANCER [None]
